FAERS Safety Report 18098478 (Version 1)
Quarter: 2020Q3

REPORT INFORMATION
  Report Type: Spontaneous
  Country: US (occurrence: US)
  Receive Date: 20200731
  Receipt Date: 20200731
  Transmission Date: 20201103
  Serious: No
  Sender: FDA-Public Use
  Company Number: US-BAYER-2020-155226

PATIENT
  Age: 69 Year
  Sex: Female

DRUGS (3)
  1. VITAMIN D [VITAMIN D NOS] [Concomitant]
     Active Substance: VITAMIN D NOS
  2. ALEVE [Suspect]
     Active Substance: NAPROXEN SODIUM
     Indication: PAIN
     Dosage: 4 DF, QD
     Route: 048
     Dates: start: 202007, end: 20200730
  3. VITAMIN C ACID [Concomitant]
     Active Substance: ASCORBIC ACID

REACTIONS (2)
  - Extra dose administered [Unknown]
  - Drug ineffective [Unknown]

NARRATIVE: CASE EVENT DATE: 202007
